FAERS Safety Report 10673764 (Version 1)
Quarter: 2014Q4

REPORT INFORMATION
  Report Type: Spontaneous
  Country: DE (occurrence: None)
  Receive Date: 20141222
  Receipt Date: 20141222
  Transmission Date: 20150529
  Serious: Yes (Other)
  Sender: FDA-Public Use
  Company Number: 2014JUB00214

PATIENT
  Age: 14 Year
  Sex: Female

DRUGS (3)
  1. PREDNISONE (PREDNISONE) [Suspect]
     Active Substance: PREDNISONE
     Indication: BRONCHOPULMONARY ASPERGILLOSIS ALLERGIC
     Route: 048
  2. ITRACONAZOLE (ITRACONAZOLE) [Concomitant]
  3. OMALIZUMAB (OMALIZUMAB) [Concomitant]

REACTIONS (6)
  - Diabetes mellitus [None]
  - Disease recurrence [None]
  - Bronchopulmonary aspergillosis allergic [None]
  - Osteoporosis [None]
  - Condition aggravated [None]
  - Cystic fibrosis lung [None]
